FAERS Safety Report 9420437 (Version 1)
Quarter: 2013Q3

REPORT INFORMATION
  Report Type: Spontaneous
  Country: US (occurrence: US)
  Receive Date: 20130725
  Receipt Date: 20130725
  Transmission Date: 20140515
  Serious: No
  Sender: FDA-Public Use
  Company Number: US-ABBOTT-13P-163-1056010-00

PATIENT
  Sex: Female

DRUGS (4)
  1. SYNTHROID 100 MCG [Suspect]
     Indication: HYPOTHYROIDISM
  2. SYNTHROID 112 MCG [Suspect]
     Indication: HYPOTHYROIDISM
  3. VITAMIN D [Concomitant]
     Indication: PRODUCT USED FOR UNKNOWN INDICATION
  4. NECON [Concomitant]
     Indication: PRODUCT USED FOR UNKNOWN INDICATION

REACTIONS (1)
  - Malabsorption [Not Recovered/Not Resolved]
